FAERS Safety Report 8828410 (Version 1)
Quarter: 2012Q4

REPORT INFORMATION
  Report Type: 
  Country: US (occurrence: US)
  Receive Date: 20121005
  Receipt Date: 20121005
  Transmission Date: 20130627
  Serious: Yes (Other)
  Sender: FDA-Public Use
  Company Number: US-BAYER-2012-102665

PATIENT
  Age: 36 Year
  Sex: Female
  Weight: 163.27 kg

DRUGS (12)
  1. YASMIN [Suspect]
     Indication: MENORRHAGIA
     Dosage: UNK
     Dates: start: 20041112, end: 20050109
  2. ATENOLOL [Concomitant]
     Dosage: 50 mg, UNK
     Dates: start: 20050102
  3. SULFAMETHOXAZOLE/TRIMETHOPRIM [Concomitant]
  4. FLONASE [Concomitant]
     Dosage: 50 mcg/ 2 puff each nostril qd
     Dates: start: 20041208
  5. NAPROXEN SODIUM W/PSEUDOEPHEDRINE HCL [Concomitant]
     Indication: MUSCLE SPASMS
     Dosage: 500 mg, PRN
  6. IBUPROFEN [Concomitant]
     Dosage: 800 mg, UNK
  7. TRIAMTERENE AND HYDROCHLOROTHIAZIDE [Concomitant]
  8. ACETAMINOPHEN W/CODEINE [Concomitant]
  9. HYDROCHLOROTHIAZIDE [Concomitant]
     Dosage: UNK
     Dates: start: 20050102
  10. VICODIN [Concomitant]
  11. IRON [Concomitant]
  12. WATER PILL [Concomitant]

REACTIONS (1)
  - Deep vein thrombosis [None]
